FAERS Safety Report 7588637-2 (Version None)
Quarter: 2011Q3

REPORT INFORMATION
  Report Type: 
  Country: None (occurrence: None)
  Receive Date: 20110705
  Receipt Date: 20110620
  Transmission Date: 20111222
  Serious: Yes (Hospitalization, Other)
  Sender: FDA-Public Use
  Company Number: US-BAYER-201025551NA

PATIENT
  Age: 18 Year
  Sex: Female
  Weight: 68.027 kg

DRUGS (5)
  1. SYNTHROID [Concomitant]
  2. PREVACID [Concomitant]
  3. YAZ [Suspect]
     Indication: PREMENSTRUAL SYNDROME
     Dosage: UNK UNK, UNK
     Route: 048
     Dates: start: 20080601, end: 20090301
  4. AMOXICILLIN [Concomitant]
  5. CLARITHROMYCIN [Concomitant]

REACTIONS (11)
  - ANXIETY [None]
  - HAEMATOCRIT DECREASED [None]
  - CHOLECYSTITIS [None]
  - ABDOMINAL PAIN UPPER [None]
  - DIARRHOEA [None]
  - INTRA-ABDOMINAL HAEMORRHAGE [None]
  - POST PROCEDURAL DRAINAGE [None]
  - ABDOMINAL PAIN [None]
  - NAUSEA [None]
  - VOMITING [None]
  - PYREXIA [None]
